FAERS Safety Report 5614953-7 (Version None)
Quarter: 2008Q1

REPORT INFORMATION
  Report Type: 
  Country: None (occurrence: None)
  Receive Date: 20080204
  Receipt Date: 20080204
  Transmission Date: 20080703
  Serious: Yes (Hospitalization)
  Sender: FDA-Public Use
  Company Number: None

PATIENT
  Age: 82 Year
  Sex: Male

DRUGS (2)
  1. HEPARIN LOCK-FLUSH [Suspect]
  2. SODIUM CHLORIDE 0.9% [Suspect]

REACTIONS (5)
  - ASTHENIA [None]
  - BLOOD CULTURE POSITIVE [None]
  - FATIGUE [None]
  - FLANK PAIN [None]
  - SERRATIA INFECTION [None]
